FAERS Safety Report 25746625 (Version 2)
Quarter: 2025Q3

REPORT INFORMATION
  Report Type: Report from Study
  Country: EU (occurrence: None)
  Receive Date: 20250901
  Receipt Date: 20250922
  Transmission Date: 20251021
  Serious: Yes (Congenital Anomaly, Other)
  Sender: ADDMEDICA
  Company Number: EU-CTRS-202500239

PATIENT
  Sex: Female

DRUGS (1)
  1. SIKLOS [Suspect]
     Active Substance: HYDROXYUREA
     Indication: Sickle cell anaemia with crisis
     Route: 064
     Dates: end: 202210

REACTIONS (3)
  - Congenital ureteropelvic junction obstruction [Not Recovered/Not Resolved]
  - Foetal heart rate disorder [Recovered/Resolved]
  - Foetal exposure during pregnancy [Recovered/Resolved]

NARRATIVE: CASE EVENT DATE: 20220917
